FAERS Safety Report 6264256-5 (Version None)
Quarter: 2009Q3

REPORT INFORMATION
  Report Type: 
  Country: None (occurrence: None)
  Receive Date: 20090706
  Receipt Date: 20081013
  Transmission Date: 20100115
  Serious: Yes (Other)
  Sender: FDA-Public Use
  Company Number: 591324

PATIENT
  Age: 46 Year
  Sex: Male

DRUGS (3)
  1. CELLCEPT [Suspect]
     Indication: DRUG USE FOR UNKNOWN INDICATION
     Dosage: 3 GRAM
     Dates: start: 20010101, end: 20080501
  2. COPAXONE [Suspect]
     Indication: MULTIPLE SCLEROSIS
     Dosage: 20 MG SUBCUTANEOUS
     Route: 058
     Dates: start: 20080101, end: 20080901
  3. AVONEX [Suspect]
     Indication: DRUG USE FOR UNKNOWN INDICATION

REACTIONS (1)
  - MALIGNANT MELANOMA [None]
